FAERS Safety Report 20725212 (Version 1)
Quarter: 2022Q2

REPORT INFORMATION
  Report Type: Spontaneous
  Country: US (occurrence: None)
  Receive Date: 20220419
  Receipt Date: 20220419
  Transmission Date: 20220720
  Serious: Yes (Hospitalization)
  Sender: FDA-Public Use
  Company Number: None

PATIENT
  Age: 65 Year
  Sex: Male
  Weight: 71.3 kg

DRUGS (1)
  1. CISPLATIN [Suspect]
     Active Substance: CISPLATIN
     Dates: end: 20220329

REACTIONS (8)
  - Nausea [None]
  - Vomiting [None]
  - Abdominal pain upper [None]
  - Platelet count decreased [None]
  - White blood cell count decreased [None]
  - Cholelithiasis [None]
  - Cholecystitis [None]
  - Neutrophil count decreased [None]

NARRATIVE: CASE EVENT DATE: 20220403
